FAERS Safety Report 16848522 (Version 1)
Quarter: 2019Q3

REPORT INFORMATION
  Report Type: Spontaneous
  Country: US (occurrence: US)
  Receive Date: 20190802
  Receipt Date: 20190802
  Transmission Date: 20191005
  Serious: No
  Sender: FDA-Public Use
  Company Number: None

PATIENT
  Age: 56 Year
  Sex: Male

DRUGS (1)
  1. REPATHA [Suspect]
     Active Substance: EVOLOCUMAB
     Indication: HYPERLIPIDAEMIA
     Route: 058
     Dates: start: 20180402

REACTIONS (4)
  - Incorrect dose administered by device [None]
  - Injection site erythema [None]
  - Device malfunction [None]
  - Injection site bruising [None]

NARRATIVE: CASE EVENT DATE: 20190724
